FAERS Safety Report 7940118-X (Version None)
Quarter: 2011Q4

REPORT INFORMATION
  Report Type: 
  Country: None (occurrence: None)
  Receive Date: 20111125
  Receipt Date: 20111114
  Transmission Date: 20120403
  Serious: Yes (Hospitalization, Other)
  Sender: FDA-Public Use
  Company Number: US-ELI_LILLY_AND_COMPANY-US201001000650

PATIENT
  Sex: Female

DRUGS (16)
  1. VITAMIN B-12 [Concomitant]
  2. ZINC [Concomitant]
  3. AMBIEN [Concomitant]
  4. OXYCODONE HCL [Concomitant]
  5. GABAPENTIN [Concomitant]
  6. XANAX [Concomitant]
  7. VITAMIN D [Concomitant]
  8. SIMVASTAN [Concomitant]
  9. MAGNESIUM SULFATE [Concomitant]
  10. VITAMIN B COMPLEX CAP [Concomitant]
  11. SYNTHROID [Concomitant]
  12. CALCIUM [Concomitant]
  13. FORTEO [Suspect]
     Indication: OSTEOPOROSIS
     Dosage: 20 MG, QD
     Dates: start: 20091201
  14. NEXIUM [Concomitant]
  15. ASPIRIN [Concomitant]
     Dosage: 325 MG, QD
  16. CHONDROITIN [Concomitant]

REACTIONS (7)
  - APHASIA [None]
  - SPINAL FRACTURE [None]
  - TRANSIENT ISCHAEMIC ATTACK [None]
  - FACIAL ASYMMETRY [None]
  - MULTIPLE FRACTURES [None]
  - HEMIPARESIS [None]
  - BONE DISORDER [None]
